FAERS Safety Report 4714593-8 (Version None)
Quarter: 2005Q3

REPORT INFORMATION
  Report Type: 
  Country: None (occurrence: None)
  Receive Date: 20050714
  Receipt Date: 20050714
  Transmission Date: 20060218
  Serious: No
  Sender: FDA-Public Use
  Company Number: None

PATIENT
  Age: 32 Year
  Sex: Male
  Weight: 100.2449 kg

DRUGS (1)
  1. DOCETAXEL  163 MG IV [Suspect]
     Indication: OESOPHAGEAL CARCINOMA
     Route: 042
     Dates: start: 20050705

REACTIONS (10)
  - ABDOMINAL PAIN UPPER [None]
  - DEHYDRATION [None]
  - DIARRHOEA [None]
  - DIZZINESS [None]
  - ILEUS [None]
  - NAUSEA [None]
  - OESOPHAGEAL STENOSIS [None]
  - PROCEDURAL SITE REACTION [None]
  - TENDERNESS [None]
  - VOMITING [None]
